FAERS Safety Report 25568799 (Version 1)
Quarter: 2025Q3

REPORT INFORMATION
  Report Type: Spontaneous
  Country: US (occurrence: US)
  Receive Date: 20250716
  Receipt Date: 20250716
  Transmission Date: 20251020
  Serious: No
  Sender: GALPHARM INTERNATIONAL
  Company Number: US-PERRIGO-25US002079

PATIENT
  Age: 42 Year
  Sex: Male
  Weight: 73.923 kg

DRUGS (3)
  1. MINOXIDIL [Suspect]
     Active Substance: MINOXIDIL
     Indication: Alopecia
     Dosage: UNK, UNK
     Route: 061
  2. MINOXIDIL [Suspect]
     Active Substance: MINOXIDIL
     Dosage: 1 ML, BID
     Route: 061
     Dates: start: 20250208, end: 20250208
  3. MINOXIDIL [Suspect]
     Active Substance: MINOXIDIL
     Route: 061
     Dates: start: 20250209, end: 20250209

REACTIONS (5)
  - Dermatitis contact [Recovered/Resolved]
  - Rash erythematous [Recovered/Resolved]
  - Angioedema [Recovered/Resolved]
  - Eye swelling [Recovered/Resolved]
  - Swelling [Recovered/Resolved]

NARRATIVE: CASE EVENT DATE: 20250208
